FAERS Safety Report 10146879 (Version 1)
Quarter: 2014Q2

REPORT INFORMATION
  Report Type: Spontaneous
  Country: US (occurrence: None)
  Receive Date: 20140430
  Receipt Date: 20140430
  Transmission Date: 20141212
  Serious: Yes (Hospitalization)
  Sender: FDA-Public Use
  Company Number: None

PATIENT
  Age: 41 Year
  Sex: Male

DRUGS (5)
  1. INFLIXIMAB [Suspect]
     Indication: COLITIS ULCERATIVE
     Route: 042
     Dates: start: 20130726, end: 20130726
  2. HYDROMORPHONE [Concomitant]
  3. PANTOPRAZOLE [Concomitant]
  4. SODIUM CHLORIDE [Concomitant]
  5. PARENTERAL NUTRITION [Concomitant]

REACTIONS (12)
  - Diarrhoea [None]
  - Dizziness [None]
  - Tachycardia [None]
  - Abdominal pain [None]
  - Flushing [None]
  - Rash [None]
  - Chest discomfort [None]
  - Paraesthesia oral [None]
  - Infusion related reaction [None]
  - Oxygen saturation decreased [None]
  - Blood pressure systolic decreased [None]
  - Body temperature decreased [None]
